FAERS Safety Report 13260086 (Version 1)
Quarter: 2017Q1

REPORT INFORMATION
  Report Type: Spontaneous
  Country: US (occurrence: US)
  Receive Date: 20170222
  Receipt Date: 20170222
  Transmission Date: 20170428
  Serious: No
  Sender: FDA-Public Use
  Company Number: US-TEVA-673736USA

PATIENT
  Sex: Female

DRUGS (1)
  1. AMPHETAMINE W/DEXTROAMPHETAMINE [Suspect]
     Active Substance: AMPHETAMINE SULFATE\DEXTROAMPHETAMINE
     Dosage: SHE STARTED AT 5 OR 10 MG, THEN SLOWLY INCREASED
     Route: 065

REACTIONS (5)
  - Crying [Unknown]
  - Adverse event [Unknown]
  - Emotional disorder [Unknown]
  - Irritability [Unknown]
  - Drug ineffective [Unknown]
